FAERS Safety Report 12328053 (Version 1)
Quarter: 2016Q2

REPORT INFORMATION
  Report Type: Spontaneous
  Country: US (occurrence: None)
  Receive Date: 20160502
  Receipt Date: 20160502
  Transmission Date: 20160815
  Serious: Yes (Hospitalization)
  Sender: FDA-Public Use
  Company Number: None

PATIENT
  Age: 68 Year
  Sex: Male
  Weight: 53.2 kg

DRUGS (1)
  1. PHENYTOIN (GENERIC - MYLAN) [Suspect]
     Active Substance: PHENYTOIN
     Indication: SEIZURE
     Route: 048
     Dates: start: 20110714, end: 20160427

REACTIONS (3)
  - Nystagmus [None]
  - Gait disturbance [None]
  - Anticonvulsant drug level increased [None]

NARRATIVE: CASE EVENT DATE: 20160427
